FAERS Safety Report 6969097-9 (Version None)
Quarter: 2010Q3

REPORT INFORMATION
  Report Type: 
  Country: None (occurrence: None)
  Receive Date: 20100907
  Receipt Date: 20100831
  Transmission Date: 20110219
  Serious: Yes (Hospitalization)
  Sender: FDA-Public Use
  Company Number: US-GILEAD-2010-0031015

PATIENT
  Sex: Female
  Weight: 60 kg

DRUGS (8)
  1. LETAIRIS [Suspect]
     Indication: PULMONARY ARTERIAL HYPERTENSION
     Route: 048
     Dates: start: 20080311, end: 20100713
  2. REVATIO [Concomitant]
  3. CELLCEPT [Concomitant]
  4. MYFORTIC [Concomitant]
  5. IMURAN [Concomitant]
  6. NEXIUM [Concomitant]
  7. KLOR-CON [Concomitant]
  8. COLACE [Concomitant]

REACTIONS (1)
  - LUNG DISORDER [None]
